FAERS Safety Report 11151766 (Version 1)
Quarter: 2015Q2

REPORT INFORMATION
  Report Type: Spontaneous
  Country: US (occurrence: None)
  Receive Date: 20150529
  Receipt Date: 20150529
  Transmission Date: 20150821
  Serious: Yes (Disabling)
  Sender: FDA-Public Use
  Company Number: None

PATIENT
  Age: 28 Year
  Sex: Female
  Weight: 96.62 kg

DRUGS (9)
  1. TOPAMAX [Concomitant]
     Active Substance: TOPIRAMATE
  2. KLONOPIN [Concomitant]
     Active Substance: CLONAZEPAM
  3. IRON [Concomitant]
     Active Substance: IRON
  4. DONG QUAI [Concomitant]
     Active Substance: ANGELICA SINENSIS ROOT
  5. NUVARING [Suspect]
     Active Substance: ETHINYL ESTRADIOL\ETONOGESTREL
     Indication: CONTRACEPTION
     Dosage: A LITTLE LESS THAN A YEAR
     Route: 067
  6. FIORCET [Concomitant]
  7. IBUPROFEN. [Concomitant]
     Active Substance: IBUPROFEN
  8. TYLENOL [Concomitant]
     Active Substance: ACETAMINOPHEN
  9. PERIGUARD [Concomitant]
     Active Substance: ZINC OXIDE

REACTIONS (3)
  - Decreased activity [None]
  - Fatigue [None]
  - Drug dose omission [None]

NARRATIVE: CASE EVENT DATE: 20140804
